FAERS Safety Report 10314461 (Version 2)
Quarter: 2014Q3

REPORT INFORMATION
  Report Type: Spontaneous
  Country: JP (occurrence: JP)
  Receive Date: 20140718
  Receipt Date: 20140718
  Transmission Date: 20150326
  Serious: Yes (Death)
  Sender: FDA-Public Use
  Company Number: JP-BAYER-2014-050565

PATIENT
  Age: 50 Year
  Sex: Male
  Weight: 66 kg

DRUGS (7)
  1. DERMOVATE [Concomitant]
     Active Substance: CLOBETASOL
     Indication: PROPHYLAXIS
     Dosage: UNK
     Route: 061
     Dates: end: 20140418
  2. FENTANYL CITRATE. [Concomitant]
     Active Substance: FENTANYL CITRATE
     Indication: RECTAL CANCER
     Dosage: DAILY DOSE 8 MG
     Route: 062
     Dates: end: 20140418
  3. STIVARGA [Suspect]
     Active Substance: REGORAFENIB
     Indication: COLORECTAL CANCER
     Dosage: 120 MG, QD
     Route: 048
     Dates: start: 20140408, end: 20140417
  4. STIVARGA [Suspect]
     Active Substance: REGORAFENIB
     Indication: COLORECTAL CANCER
     Dosage: 160 MG, QD
     Route: 048
     Dates: start: 20140319, end: 20140401
  5. HIRUDOID [Concomitant]
     Active Substance: GLYCOSAMINOGLYCANS
     Indication: PROPHYLAXIS
     Dosage: UNK
     Route: 061
     Dates: end: 20140418
  6. KINDAVATE [Concomitant]
     Indication: PROPHYLAXIS
     Dosage: UNK
     Route: 061
     Dates: end: 20140418
  7. OXINORM [OXYCODONE HYDROCHLORIDE] [Concomitant]
     Indication: RECTAL CANCER
     Dosage: DAILY DOSE 5 MG
     Route: 048
     Dates: end: 20140418

REACTIONS (2)
  - Hepatitis fulminant [Fatal]
  - Blood bilirubin increased [Recovered/Resolved]

NARRATIVE: CASE EVENT DATE: 20140401
